FAERS Safety Report 15901854 (Version 2)
Quarter: 2019Q1

REPORT INFORMATION
  Report Type: Spontaneous
  Country: JP (occurrence: JP)
  Receive Date: 20190201
  Receipt Date: 20190328
  Transmission Date: 20190417
  Serious: Yes (Life-Threatening, Hospitalization, Other)
  Sender: FDA-Public Use
  Company Number: JP-009507513-1901JPN001411J

PATIENT
  Age: 66 Year
  Sex: Male
  Weight: 61 kg

DRUGS (1)
  1. KEYTRUDA [Suspect]
     Active Substance: PEMBROLIZUMAB
     Indication: NON-SMALL CELL LUNG CANCER
     Dosage: 200 MILLIGRAM, Q3W
     Route: 041
     Dates: start: 20181112, end: 20181207

REACTIONS (5)
  - Renal failure [Recovering/Resolving]
  - Enterocolitis [Unknown]
  - Disseminated intravascular coagulation [Unknown]
  - Pyelonephritis acute [Unknown]
  - Pyrexia [Unknown]

NARRATIVE: CASE EVENT DATE: 201901
